FAERS Safety Report 18378244 (Version 1)
Quarter: 2020Q4

REPORT INFORMATION
  Report Type: Report from Study
  Country: ES (occurrence: ES)
  Receive Date: 20201013
  Receipt Date: 20201013
  Transmission Date: 20210114
  Serious: Yes (Life-Threatening)
  Sender: FDA-Public Use
  Company Number: ES-TAKEDA-2020TUS042519

PATIENT
  Age: 26 Year
  Sex: Female

DRUGS (2)
  1. VORTIOXETINE. [Suspect]
     Active Substance: VORTIOXETINE
     Indication: SUICIDE ATTEMPT
     Dosage: UNK
     Route: 048
     Dates: start: 20200909
  2. PARACETAMOL [Suspect]
     Active Substance: ACETAMINOPHEN
     Indication: SUICIDAL IDEATION
     Dosage: UNK
     Route: 048
     Dates: start: 20200909

REACTIONS (2)
  - Depressed level of consciousness [Recovered/Resolved]
  - Intentional overdose [Recovered/Resolved]

NARRATIVE: CASE EVENT DATE: 20200909
